FAERS Safety Report 12999140 (Version 2)
Quarter: 2016Q4

REPORT INFORMATION
  Report Type: Spontaneous
  Country: US (occurrence: US)
  Receive Date: 20161205
  Receipt Date: 20161208
  Transmission Date: 20170207
  Serious: No
  Sender: FDA-Public Use
  Company Number: US-GLAXOSMITHKLINE-US2016179031

PATIENT
  Age: 66 Year
  Sex: Female

DRUGS (1)
  1. VOLTAREN [Suspect]
     Active Substance: DICLOFENAC SODIUM
     Indication: ROTATOR CUFF SYNDROME
     Dosage: UNK UNK, SINGLE, USED ONCE
     Route: 061
     Dates: start: 20161123, end: 20161123

REACTIONS (5)
  - Adverse reaction [Unknown]
  - Off label use [Unknown]
  - Dyspnoea [Recovered/Resolved]
  - Drug administered at inappropriate site [Unknown]
  - Headache [Recovered/Resolved]

NARRATIVE: CASE EVENT DATE: 20161123
